FAERS Safety Report 24300030 (Version 1)
Quarter: 2024Q3

REPORT INFORMATION
  Report Type: Spontaneous
  Country: US (occurrence: None)
  Receive Date: 20240909
  Receipt Date: 20240909
  Transmission Date: 20241016
  Serious: Yes (Other)
  Sender: Public
  Company Number: None

PATIENT
  Age: 58 Year
  Sex: Female
  Weight: 110.7 kg

DRUGS (3)
  1. HUMIRA [Suspect]
     Active Substance: ADALIMUMAB
     Indication: Psoriatic arthropathy
     Dates: start: 20240606
  2. mexotherate [Concomitant]
  3. Flolic Acid [Concomitant]

REACTIONS (5)
  - Injection site induration [None]
  - Injection site erythema [None]
  - Injection site pruritus [None]
  - Nail bed infection [None]
  - White blood cell count decreased [None]

NARRATIVE: CASE EVENT DATE: 20240819
